FAERS Safety Report 5902787-5 (Version None)
Quarter: 2008Q3

REPORT INFORMATION
  Report Type: 
  Country: None (occurrence: None)
  Receive Date: 20080926
  Receipt Date: 20080922
  Transmission Date: 20090109
  Serious: Yes (Life-Threatening, Hospitalization, Congenital Anomaly)
  Sender: FDA-Public Use
  Company Number: 2008-184148-NL

PATIENT
  Sex: Female

DRUGS (4)
  1. MIRTAZAPINE [Suspect]
     Dosage: DF TRANSPLACENTAL
     Route: 064
     Dates: end: 20060531
  2. MIRTAZAPINE [Suspect]
     Dosage: DF TRANSPLACENTAL
     Route: 064
     Dates: start: 20050927
  3. METHADONE HCL [Suspect]
     Dosage: TRANSPLACENTAL
     Route: 064
     Dates: start: 20050927, end: 20060531
  4. DIAZEPAM [Suspect]
     Dosage: 35 MG, TRANSPLACENTAL
     Route: 064
     Dates: start: 20050927

REACTIONS (7)
  - ATRIAL SEPTAL DEFECT [None]
  - CAESAREAN SECTION [None]
  - DRUG WITHDRAWAL SYNDROME NEONATAL [None]
  - MATERNAL DRUGS AFFECTING FOETUS [None]
  - MULTIPLE CARDIAC DEFECTS [None]
  - PATENT DUCTUS ARTERIOSUS [None]
  - VENTRICULAR SEPTAL DEFECT [None]
